FAERS Safety Report 7748785-0 (Version None)
Quarter: 2011Q3

REPORT INFORMATION
  Report Type: 
  Country: None (occurrence: None)
  Receive Date: 20110913
  Receipt Date: 20110913
  Transmission Date: 20111222
  Serious: Yes (Hospitalization)
  Sender: FDA-Public Use
  Company Number: None

PATIENT
  Age: 57 Year
  Sex: Male
  Weight: 101 kg

DRUGS (1)
  1. AMPICILLIN AND SULBACTAM [Suspect]
     Indication: OSTEOMYELITIS
     Dosage: 3 GM QID IV
     Route: 042
     Dates: start: 20110515, end: 20110517

REACTIONS (2)
  - CONDITION AGGRAVATED [None]
  - HEPATIC ENZYME INCREASED [None]
